FAERS Safety Report 8629648 (Version 2)
Quarter: 2013Q1

REPORT INFORMATION
  Report Type: Spontaneous
  Country: CA (occurrence: CA)
  Receive Date: 20120622
  Receipt Date: 20130327
  Transmission Date: 20140127
  Serious: Yes (Hospitalization, Other)
  Sender: FDA-Public Use
  Company Number: CA-JNJFOC-20120607089

PATIENT
  Sex: Female
  Weight: 59 kg

DRUGS (3)
  1. REMICADE [Suspect]
     Indication: COLITIS ULCERATIVE
     Dosage: TOTAL NUMBER OF INFUSIONS RECEIVED BY THE PATIENT: 11
     Route: 042
     Dates: start: 20110205, end: 20120601
  2. IMURAN [Concomitant]
  3. PREDNISONE [Concomitant]

REACTIONS (1)
  - Breast cancer [Recovering/Resolving]
